FAERS Safety Report 7768813-6 (Version None)
Quarter: 2011Q3

REPORT INFORMATION
  Report Type: 
  Country: None (occurrence: None)
  Receive Date: 20110922
  Receipt Date: 20110715
  Transmission Date: 20111222
  Serious: Yes (Hospitalization)
  Sender: FDA-Public Use
  Company Number: CH-US-EMD SERONO, INC.-7036714

PATIENT
  Sex: Female
  Weight: 66 kg

DRUGS (17)
  1. LISPIDRIL [Concomitant]
     Indication: HYPERTENSION
     Dosage: 10/12.5
     Route: 048
  2. PANTOPRAZOLE [Concomitant]
     Dates: start: 20110601
  3. ACETAMINOPHEN [Concomitant]
     Indication: INFLUENZA LIKE ILLNESS
  4. PLAQUENIL [Concomitant]
     Dates: start: 20110601
  5. LISTRIL [Concomitant]
     Dates: start: 20110601
  6. LORAZEPAM [Concomitant]
     Indication: ANXIETY
     Dates: start: 20110601
  7. REBIF [Suspect]
     Indication: MULTIPLE SCLEROSIS
     Route: 058
     Dates: start: 20101113, end: 20110228
  8. ACTITUM FOLLICUM [Concomitant]
     Dates: start: 20110601
  9. REBIF [Suspect]
     Route: 058
     Dates: start: 20110401, end: 20110501
  10. BECOZYM [Concomitant]
     Dates: start: 20110601
  11. REBIF [Suspect]
     Route: 058
     Dates: start: 20110228, end: 20110401
  12. NEBIVOLOL HCL [Concomitant]
     Indication: HYPERTENSION
     Route: 048
  13. IBRUPROFEN [Concomitant]
  14. CALCIMAGON KAUDRAGEES [Concomitant]
     Dates: start: 20110601
  15. MARCUMAR [Concomitant]
     Dates: start: 20110601
  16. ATORVASTATIN CALCIUM [Concomitant]
     Dates: start: 20110601
  17. VITAMIN B COMPLEX CAP [Concomitant]
     Dates: start: 20110601

REACTIONS (9)
  - MYOCARDIAL INFARCTION [None]
  - INJECTION SITE ERYTHEMA [None]
  - INJECTION SITE DISCOLOURATION [None]
  - MULTIPLE SCLEROSIS [None]
  - DEPRESSION [None]
  - ERYTHEMA [None]
  - INAPPROPRIATE SCHEDULE OF DRUG ADMINISTRATION [None]
  - PULMONARY EMBOLISM [None]
  - CORONARY ARTERY EMBOLISM [None]
